FAERS Safety Report 16329263 (Version 1)
Quarter: 2019Q2

REPORT INFORMATION
  Report Type: Spontaneous
  Country: US (occurrence: US)
  Receive Date: 20190520
  Receipt Date: 20190520
  Transmission Date: 20190711
  Serious: No
  Sender: FDA-Public Use
  Company Number: US-BION-007599

PATIENT
  Sex: Female

DRUGS (1)
  1. IBUPROFEN 200MG SOFT GEL 300CT [Suspect]
     Active Substance: IBUPROFEN
     Indication: MIGRAINE
     Dosage: STRENGTH: 200 MG?DOSE: 4 SOFTGELS ON THE FIRST DAY. 1 SOFTGEL EVERY 4 HOURS ON THE NEXT DAY
     Route: 048
     Dates: start: 20181026, end: 20181027

REACTIONS (4)
  - Pruritus [Recovering/Resolving]
  - Product use in unapproved indication [Not Recovered/Not Resolved]
  - Swelling face [Recovering/Resolving]
  - Eye swelling [Unknown]

NARRATIVE: CASE EVENT DATE: 20181027
